FAERS Safety Report 22177308 (Version 2)
Quarter: 2023Q4

REPORT INFORMATION
  Report Type: Spontaneous
  Country: FR (occurrence: FR)
  Receive Date: 20230405
  Receipt Date: 20231004
  Transmission Date: 20240109
  Serious: Yes (Death, Other)
  Sender: FDA-Public Use
  Company Number: FR-AMGEN-FRASP2023058067

PATIENT

DRUGS (2)
  1. LUMAKRAS [Suspect]
     Active Substance: SOTORASIB
     Indication: Product used for unknown indication
     Dosage: 480 MILLIGRAM, QD
     Route: 065
  2. LUMAKRAS [Suspect]
     Active Substance: SOTORASIB
     Dosage: UNK, DOSE DECREASED
     Route: 065
     Dates: start: 20220413, end: 20220729

REACTIONS (5)
  - Disease progression [Fatal]
  - Decreased appetite [Unknown]
  - Pain [Unknown]
  - Weight decreased [Unknown]
  - Off label use [Unknown]
